FAERS Safety Report 4951267-2 (Version None)
Quarter: 2006Q1

REPORT INFORMATION
  Report Type: 
  Country: None (occurrence: None)
  Receive Date: 20060323
  Receipt Date: 20060314
  Transmission Date: 20060701
  Serious: Yes (Hospitalization)
  Sender: FDA-Public Use
  Company Number: FR-JNJFOC-20060303760

PATIENT
  Age: 55 Year
  Sex: Male

DRUGS (5)
  1. REMICADE [Suspect]
     Dosage: FOURTH INFUSION
     Route: 042
  2. REMICADE [Suspect]
     Route: 042
  3. REMICADE [Suspect]
     Indication: ANKYLOSING SPONDYLITIS
     Route: 042
  4. FELDENE [Concomitant]
  5. PARIET [Concomitant]

REACTIONS (13)
  - BACK PAIN [None]
  - CLONUS [None]
  - HEADACHE [None]
  - HYPERHIDROSIS [None]
  - HYPOTHERMIA [None]
  - INFUSION RELATED REACTION [None]
  - LEUKOENCEPHALOPATHY [None]
  - MALAISE [None]
  - MITRAL VALVE INCOMPETENCE [None]
  - PHARYNGOLARYNGEAL PAIN [None]
  - SYNCOPE [None]
  - TACHYCARDIA [None]
  - VERTIGO [None]
